FAERS Safety Report 5091192-2 (Version None)
Quarter: 2006Q3

REPORT INFORMATION
  Report Type: 
  Country: None (occurrence: None)
  Receive Date: 20060825
  Receipt Date: 20060825
  Transmission Date: 20061208
  Serious: Yes (Other)
  Sender: FDA-Public Use
  Company Number: None

PATIENT
  Age: 32 Year
  Sex: Female
  Weight: 68.0396 kg

DRUGS (5)
  1. ZOLOFT [Suspect]
     Indication: NERVOUSNESS
     Dosage: 200MG    ONCE DAILY   PO
     Route: 048
     Dates: start: 19990508, end: 20060817
  2. ZOLOFT [Suspect]
     Indication: OBSESSIVE-COMPULSIVE DISORDER
     Dosage: 200MG    ONCE DAILY   PO
     Route: 048
     Dates: start: 19990508, end: 20060817
  3. ZOLOFT [Concomitant]
  4. RESTORIL [Concomitant]
  5. XANAX [Concomitant]

REACTIONS (19)
  - ABASIA [None]
  - ABNORMAL BEHAVIOUR [None]
  - AMNESIA [None]
  - ANOREXIA [None]
  - CHILLS [None]
  - DIARRHOEA [None]
  - DIPLOPIA [None]
  - DRUG WITHDRAWAL SYNDROME [None]
  - FALL [None]
  - HALLUCINATION [None]
  - HALLUCINATION, VISUAL [None]
  - HEADACHE [None]
  - INSOMNIA [None]
  - MUSCLE SPASMS [None]
  - MUSCULOSKELETAL STIFFNESS [None]
  - MYDRIASIS [None]
  - PAIN IN EXTREMITY [None]
  - TREMOR [None]
  - VOMITING [None]
